FAERS Safety Report 10882519 (Version 1)
Quarter: 2015Q1

REPORT INFORMATION
  Report Type: Spontaneous
  Country: US (occurrence: US)
  Receive Date: 20150303
  Receipt Date: 20150303
  Transmission Date: 20150721
  Serious: Yes (Life-Threatening, Hospitalization)
  Sender: FDA-Public Use
  Company Number: US-BAYER-2015-031968

PATIENT
  Sex: Female

DRUGS (1)
  1. MIRENA [Suspect]
     Active Substance: LEVONORGESTREL
     Dosage: 20 MCG/24HR, CONT
     Route: 015
     Dates: start: 20100507, end: 20120422

REACTIONS (7)
  - Injury [None]
  - General physical health deterioration [None]
  - Emotional distress [None]
  - Pain [None]
  - Uterine perforation [None]
  - Anxiety [None]
  - Anhedonia [None]

NARRATIVE: CASE EVENT DATE: 20120422
